FAERS Safety Report 8317012-8 (Version None)
Quarter: 2012Q2

REPORT INFORMATION
  Report Type: 
  Country: None (occurrence: None)
  Receive Date: 20120425
  Receipt Date: 20120416
  Transmission Date: 20120825
  Serious: No
  Sender: FDA-Public Use
  Company Number: 2012SP021379

PATIENT
  Sex: Female

DRUGS (5)
  1. LORAZEPAM [Concomitant]
  2. OLANZAPINE [Concomitant]
  3. SYCREST (ASENAPINE /05706901/) (5 MG) [Suspect]
     Indication: BIPOLAR I DISORDER
     Dosage: 5 MG;BID;SL
     Route: 060
     Dates: start: 20120301, end: 20120401
  4. LITHIUM CARBONATE [Concomitant]
  5. AKINETON [Concomitant]

REACTIONS (2)
  - HYPOAESTHESIA ORAL [None]
  - FACE OEDEMA [None]
